FAERS Safety Report 8467401 (Version 2)
Quarter: 2012Q4

REPORT INFORMATION
  Report Type: 
  Country: ES (occurrence: ES)
  Receive Date: 20120320
  Receipt Date: 20120829
  Transmission Date: 20130627
  Serious: Yes (Other)
  Sender: FDA-Public Use
  Company Number: ES-ELI_LILLY_AND_COMPANY-ES201203002892

PATIENT
  Age: 50 Year
  Sex: Male

DRUGS (1)
  1. CIALIS [Suspect]
     Indication: ERECTILE DYSFUNCTION
     Dosage: 5 mg, qd

REACTIONS (4)
  - Eye haemorrhage [Recovered/Resolved]
  - Eyelid oedema [Recovered/Resolved]
  - Eye oedema [Recovered/Resolved]
  - Face oedema [Recovered/Resolved]
